FAERS Safety Report 11917936 (Version 2)
Quarter: 2016Q1

REPORT INFORMATION
  Report Type: Spontaneous
  Country: US (occurrence: US)
  Receive Date: 20160114
  Receipt Date: 20160318
  Transmission Date: 20160526
  Serious: Yes (Hospitalization, Other)
  Sender: FDA-Public Use
  Company Number: US-RETROPHIN, INC.-2015RTN00008

PATIENT
  Age: 15 Year
  Sex: Female
  Weight: 46.7 kg

DRUGS (5)
  1. NALTREXONE [Concomitant]
     Active Substance: NALTREXONE
     Indication: PRURITUS
     Dosage: 25 MG, UNK
  2. BUDESONIDE. [Concomitant]
     Active Substance: BUDESONIDE
     Indication: PRURITUS
     Dosage: 3 MG, 1X/DAY
  3. URSODIOL. [Concomitant]
     Active Substance: URSODIOL
     Indication: PRURITUS
     Dosage: 300 MG, 3X/DAY
  4. CHOLBAM [Suspect]
     Active Substance: CHOLIC ACID
     Indication: PROGRESSIVE FAMILIAL INTRAHEPATIC CHOLESTASIS
     Dosage: 250MG, 2 CAPSULES, ONCE DAILY
     Dates: start: 20151207, end: 20151219
  5. URSODIOL. [Concomitant]
     Active Substance: URSODIOL
     Indication: PROGRESSIVE FAMILIAL INTRAHEPATIC CHOLESTASIS

REACTIONS (7)
  - Excoriation [Unknown]
  - Jaundice [Unknown]
  - Pruritus [Recovering/Resolving]
  - Sleep disorder [Unknown]
  - Abdominal pain upper [Recovering/Resolving]
  - Pain of skin [Unknown]
  - Pancreatitis [Recovered/Resolved]

NARRATIVE: CASE EVENT DATE: 20151215
